FAERS Safety Report 14360733 (Version 11)
Quarter: 2019Q2

REPORT INFORMATION
  Report Type: Report from Study
  Country: CN (occurrence: CN)
  Receive Date: 20180106
  Receipt Date: 20190607
  Transmission Date: 20190711
  Serious: Yes (Hospitalization, Other)
  Sender: FDA-Public Use
  Company Number: PHHY2017CN173878

PATIENT
  Age: 49 Year
  Sex: Male
  Weight: 62.3 kg

DRUGS (31)
  1. HUMAN ALBUMIN [Concomitant]
     Active Substance: ALBUMIN HUMAN
     Indication: PRODUCT USED FOR UNKNOWN INDICATION
     Dosage: UNK
     Route: 065
     Dates: start: 20171115, end: 20171120
  2. TACROLIMUS. [Suspect]
     Active Substance: TACROLIMUS
     Indication: PROPHYLAXIS AGAINST TRANSPLANT REJECTION
     Route: 065
  3. MAGNES SULF [Concomitant]
     Indication: ELECTROLYTE IMBALANCE
     Dosage: 3.2 ML, SOS
     Route: 042
     Dates: start: 20171106, end: 20171106
  4. CEFOPERAZONE SODIUM AND SULBACTAM SODIUM [Concomitant]
     Active Substance: CEFOPERAZONE SODIUM\SULBACTAM SODIUM
     Indication: INFECTION
     Dosage: 2000 MG, Q12H
     Route: 042
     Dates: start: 20171106, end: 20171120
  5. INSULIN [Concomitant]
     Active Substance: INSULIN NOS
     Indication: ELECTROLYTE IMBALANCE
     Dosage: 12 IU, SOS
     Route: 042
     Dates: start: 20171106, end: 20171106
  6. POTASSIUM CHLORIDE. [Concomitant]
     Active Substance: POTASSIUM CHLORIDE
     Indication: HYPOKALAEMIA
     Dosage: 1000 MG, TID
     Route: 048
     Dates: start: 20171107, end: 20171126
  7. MYFORTIC [Suspect]
     Active Substance: MYCOPHENOLATE SODIUM
     Dosage: 1440 MG, QD
     Route: 065
     Dates: start: 20171105, end: 20171105
  8. SIMULECT [Suspect]
     Active Substance: BASILIXIMAB
     Indication: RENAL TRANSPLANT
     Route: 065
  9. MYFORTIC [Suspect]
     Active Substance: MYCOPHENOLATE SODIUM
     Indication: RENAL TRANSPLANT
     Dosage: 1440 MG, QD
     Route: 065
     Dates: start: 20171105, end: 20171105
  10. SIMULECT [Suspect]
     Active Substance: BASILIXIMAB
     Indication: PROPHYLAXIS AGAINST TRANSPLANT REJECTION
  11. SODIUM BICARBONATE. [Concomitant]
     Active Substance: SODIUM BICARBONATE
     Indication: ELECTROLYTE IMBALANCE
     Dosage: 250 ML, SOS
     Route: 042
     Dates: start: 20171106, end: 20171106
  12. NORVASC [Concomitant]
     Active Substance: AMLODIPINE BESYLATE
     Indication: HYPERTENSION
     Dosage: 5 MG, QD
     Route: 065
     Dates: start: 20171111
  13. ALPRAZOLAM. [Concomitant]
     Active Substance: ALPRAZOLAM
     Indication: SEDATIVE THERAPY
     Dosage: 0.4 MG, QD
     Route: 048
     Dates: start: 20171106, end: 20171127
  14. CASPOFUNGIN ACETATE. [Concomitant]
     Active Substance: CASPOFUNGIN ACETATE
     Indication: INFECTION
     Dosage: 50 MG, QD
     Route: 042
     Dates: start: 20171106, end: 20171112
  15. HEPARIN SODIUM. [Concomitant]
     Active Substance: HEPARIN SODIUM
     Indication: RENAL DISORDER
     Dosage: 12500 IU, SOS
     Route: 042
     Dates: start: 20171108, end: 20171108
  16. HYDROTALCITE [Concomitant]
     Active Substance: HYDROTALCITE
     Indication: ANTIVIRAL PROPHYLAXIS
     Dosage: 1000 MG, UNK
     Route: 048
     Dates: start: 20171106, end: 20171127
  17. MYFORTIC [Suspect]
     Active Substance: MYCOPHENOLATE SODIUM
     Indication: PROPHYLAXIS AGAINST TRANSPLANT REJECTION
     Dosage: UNK UNK, BID
     Route: 065
     Dates: start: 20171105, end: 20171120
  18. MYFORTIC [Suspect]
     Active Substance: MYCOPHENOLATE SODIUM
     Indication: PROPHYLAXIS
     Dosage: 2160 MG, QD
     Route: 065
     Dates: start: 20171106, end: 20171112
  19. MYFORTIC [Suspect]
     Active Substance: MYCOPHENOLATE SODIUM
     Dosage: 720 MG, QD
     Route: 065
     Dates: start: 20171120
  20. BASILIXIMAB [Suspect]
     Active Substance: BASILIXIMAB
     Indication: PRODUCT USED FOR UNKNOWN INDICATION
     Dosage: 20 MG, QD
     Route: 065
     Dates: start: 20171105, end: 20171105
  21. BUDESONIDE. [Concomitant]
     Active Substance: BUDESONIDE
     Indication: ASTHMA
     Dosage: 1 MG, SOS
     Route: 055
     Dates: start: 20171106, end: 20171106
  22. HYDROTALCITE [Concomitant]
     Active Substance: HYDROTALCITE
     Indication: GASTRIC PH DECREASED
     Dosage: 1000 MG, QD
     Route: 048
     Dates: start: 20171106, end: 20171214
  23. DILTIAZEM. [Concomitant]
     Active Substance: DILTIAZEM
     Indication: PRODUCT USED FOR UNKNOWN INDICATION
     Dosage: 30 MG, BID
     Route: 048
     Dates: start: 20171106
  24. POTASSIUM CHLORIDE. [Concomitant]
     Active Substance: POTASSIUM CHLORIDE
     Indication: ELECTROLYTE IMBALANCE
     Dosage: 12 ML, UNK
     Route: 042
     Dates: start: 20171106, end: 20171106
  25. BASILIXIMAB [Suspect]
     Active Substance: BASILIXIMAB
     Dosage: 20 MG, QD
     Route: 065
     Dates: start: 20171109, end: 20171109
  26. PANTOPRAZOLE SODIUM. [Concomitant]
     Active Substance: PANTOPRAZOLE SODIUM
     Indication: GASTRIC PH DECREASED
     Dosage: 40 MG, QD
     Route: 042
     Dates: start: 20171106, end: 20171113
  27. PANTOPRAZOLE SODIUM. [Concomitant]
     Active Substance: PANTOPRAZOLE SODIUM
     Dosage: 40 MG, SOS
     Route: 042
     Dates: start: 20171106, end: 20171106
  28. MYFORTIC [Suspect]
     Active Substance: MYCOPHENOLATE SODIUM
     Dosage: 360 MG, BID
     Route: 048
     Dates: start: 20171127, end: 20180110
  29. GLUCOSE [Concomitant]
     Active Substance: DEXTROSE
     Indication: ELECTROLYTE IMBALANCE
     Dosage: 2000 ML, SOS
     Route: 042
     Dates: start: 20171106, end: 20171106
  30. HUMAN HEPATITIS B IMMUNOGLOBULIN [Concomitant]
     Indication: ANTIVIRAL PROPHYLAXIS
     Dosage: 400 IU, SOS
     Route: 030
     Dates: start: 20171106, end: 20171106
  31. HYDROTALCITE [Concomitant]
     Active Substance: HYDROTALCITE
     Indication: PROPHYLAXIS

REACTIONS (19)
  - Hypokalaemia [Recovered/Resolved]
  - Effusion [Recovered/Resolved]
  - Haemoglobin decreased [Recovered/Resolved]
  - Blood uric acid increased [Recovered/Resolved]
  - Protein urine present [Recovered/Resolved]
  - Globulins decreased [Recovered/Resolved]
  - Urinary retention [Recovered/Resolved]
  - Blood creatinine increased [Recovered/Resolved]
  - Urinary fistula [Recovered/Resolved]
  - Blood albumin decreased [Recovered/Resolved]
  - Abdominal pain lower [Recovered/Resolved]
  - Hepatic cyst [Recovered/Resolved]
  - Immunodeficiency [Recovered/Resolved]
  - Nephrogenic anaemia [Recovered/Resolved]
  - Device occlusion [Recovered/Resolved]
  - Diabetes mellitus [Recovered/Resolved]
  - Renal atrophy [Recovered/Resolved]
  - Blood pressure increased [Recovered/Resolved]
  - Incision site pain [Recovered/Resolved]

NARRATIVE: CASE EVENT DATE: 201711
